FAERS Safety Report 5914346-9 (Version None)
Quarter: 2008Q4

REPORT INFORMATION
  Report Type: 
  Country: None (occurrence: None)
  Receive Date: 20081007
  Receipt Date: 20080925
  Transmission Date: 20090506
  Serious: Yes (Hospitalization)
  Sender: FDA-Public Use
  Company Number: 2008BI011857

PATIENT
  Age: 56 Year
  Sex: Male

DRUGS (3)
  1. AVONEX [Suspect]
     Indication: MULTIPLE SCLEROSIS
     Dosage: 30 UG; QW; IM
     Route: 030
     Dates: start: 20070511
  2. . [Concomitant]
  3. . [Concomitant]

REACTIONS (8)
  - ALCOHOL ABUSE [None]
  - BLOOD POTASSIUM DECREASED [None]
  - CONVULSION [None]
  - HEPATIC FAILURE [None]
  - HYPOMAGNESAEMIA [None]
  - HYPONATRAEMIA [None]
  - HYPOPHAGIA [None]
  - RENAL FAILURE [None]
